FAERS Safety Report 5627056-2 (Version None)
Quarter: 2008Q1

REPORT INFORMATION
  Report Type: 
  Country: None (occurrence: None)
  Receive Date: 20080116
  Receipt Date: 20071031
  Transmission Date: 20080703
  Serious: Yes (Hospitalization)
  Sender: FDA-Public Use
  Company Number: LUP-0180

PATIENT
  Age: 59 Year
  Sex: Female

DRUGS (2)
  1. CEFTRIAXONE [Suspect]
     Indication: OSTEOMYELITIS
     Dosage: 2 G/DAY IV ; 1 G 12-HOURLR IV
     Route: 042
  2. VANCOMYIN (VANCOMYCIN) [Concomitant]

REACTIONS (1)
  - NEPHRITIS INTERSTITIAL [None]
